FAERS Safety Report 4866857-5 (Version None)
Quarter: 2005Q4

REPORT INFORMATION
  Report Type: 
  Country: None (occurrence: None)
  Receive Date: 20051222
  Receipt Date: 20051215
  Transmission Date: 20060501
  Serious: Yes (Hospitalization)
  Sender: FDA-Public Use
  Company Number: HQWYE063916DEC05

PATIENT
  Age: 95 Year
  Sex: Female

DRUGS (5)
  1. CORDARONE [Suspect]
     Dosage: 200 MG 1X PER 1 DAY ORAL  MORE THAN ONE YEAR  : 800 MG ORAL
     Route: 048
     Dates: start: 20050601, end: 20050601
  2. CORDARONE [Suspect]
     Dosage: 200 MG 1X PER 1 DAY ORAL  MORE THAN ONE YEAR  : 800 MG ORAL
     Route: 048
     Dates: end: 20050628
  3. DIAMICRON (GLICLAZIDE) [Concomitant]
  4. VASTAREL (TRIMETAZIDINE HYDROCHLORIDE) [Concomitant]
  5. QUINAPRIL HCL [Concomitant]

REACTIONS (9)
  - ATRIAL FIBRILLATION [None]
  - BUNDLE BRANCH BLOCK RIGHT [None]
  - DIABETES MELLITUS INADEQUATE CONTROL [None]
  - DIARRHOEA [None]
  - DYSPNOEA EXACERBATED [None]
  - HYPERTHYROIDISM [None]
  - PALPITATIONS [None]
  - TREMOR [None]
  - WEIGHT DECREASED [None]
